FAERS Safety Report 9418106 (Version 1)
Quarter: 2013Q3

REPORT INFORMATION
  Report Type: Spontaneous
  Country: US (occurrence: US)
  Receive Date: 20130724
  Receipt Date: 20130724
  Transmission Date: 20140515
  Serious: No
  Sender: FDA-Public Use
  Company Number: US-US-EMD SERONO, INC.-7132340

PATIENT
  Age: 74 Year
  Sex: Female

DRUGS (3)
  1. REBIF [Suspect]
     Indication: MULTIPLE SCLEROSIS
     Route: 058
     Dates: start: 20111202
  2. CELLCEPT [Concomitant]
     Indication: MYASTHENIA GRAVIS
  3. MESTINON [Concomitant]
     Indication: MYASTHENIA GRAVIS

REACTIONS (2)
  - Infection [Unknown]
  - Nuclear magnetic resonance imaging brain abnormal [Unknown]
